FAERS Safety Report 7621418-X (Version None)
Quarter: 2011Q3

REPORT INFORMATION
  Report Type: 
  Country: None (occurrence: None)
  Receive Date: 20110719
  Receipt Date: 20110708
  Transmission Date: 20111222
  Serious: Yes (Other)
  Sender: FDA-Public Use
  Company Number: US-VERTEX PHARMACEUTICALS INC.-AE-2011-000349

PATIENT
  Sex: Male
  Weight: 82.174 kg

DRUGS (10)
  1. RIBAVIRIN [Suspect]
     Indication: HEPATITIS C
     Route: 048
     Dates: start: 20110324
  2. MULTI-VITAMIN [Concomitant]
     Indication: SUPPLEMENTATION THERAPY
     Route: 048
  3. ZYRTEC [Concomitant]
     Indication: SEASONAL ALLERGY
     Route: 048
  4. VALACYCLOVIR [Concomitant]
     Indication: HERPES SIMPLEX
     Route: 048
  5. BUPROPION HCL [Concomitant]
     Indication: ERECTILE DYSFUNCTION
     Route: 048
  6. PEGASYS [Suspect]
     Indication: HEPATITIS C
     Route: 058
     Dates: start: 20110324
  7. FISH OIL [Concomitant]
     Indication: SUPPLEMENTATION THERAPY
     Route: 048
  8. RIBAVIRIN [Suspect]
  9. VX-950 [Suspect]
     Indication: HEPATITIS C
     Dates: start: 20110324, end: 20110615
  10. UNISOM [Concomitant]
     Indication: INSOMNIA
     Route: 048

REACTIONS (1)
  - DRUG RASH WITH EOSINOPHILIA AND SYSTEMIC SYMPTOMS [None]
